FAERS Safety Report 4574736-6 (Version None)
Quarter: 2005Q1

REPORT INFORMATION
  Report Type: 
  Country: None (occurrence: None)
  Receive Date: 20050204
  Receipt Date: 20050127
  Transmission Date: 20050727
  Serious: Yes (Other)
  Sender: FDA-Public Use
  Company Number: HQWYE136421SEP04

PATIENT
  Age: 31 Year
  Sex: Female
  Weight: 59.93 kg

DRUGS (2)
  1. EFFEXOR XR [Suspect]
     Indication: PANIC ATTACK
     Dosage: SEE IMAGEL
     Route: 048
     Dates: start: 20020101
  2. VITAMINS (VITAMINS) [Concomitant]

REACTIONS (11)
  - ANTEPARTUM HAEMORRHAGE [None]
  - CRYING [None]
  - DIZZINESS [None]
  - DRUG EXPOSURE DURING PREGNANCY [None]
  - DRUG WITHDRAWAL SYNDROME [None]
  - FEELING ABNORMAL [None]
  - NAUSEA [None]
  - PLACENTA PRAEVIA [None]
  - TINNITUS [None]
  - TREATMENT NONCOMPLIANCE [None]
  - VERTIGO [None]
